FAERS Safety Report 8358086-8 (Version None)
Quarter: 2012Q2

REPORT INFORMATION
  Report Type: 
  Country: None (occurrence: None)
  Receive Date: 20120514
  Receipt Date: 20120503
  Transmission Date: 20120825
  Serious: Yes (Other)
  Sender: FDA-Public Use
  Company Number: CA-ROCHE-GNE285906

PATIENT
  Sex: Male

DRUGS (2)
  1. XOLAIR [Suspect]
     Indication: ASTHMA
     Dosage: 150 MG, 1/MONTH
     Route: 058
     Dates: start: 20090227
  2. XOLAIR [Suspect]
     Route: 058
     Dates: start: 20111014

REACTIONS (6)
  - HEART RATE INCREASED [None]
  - MYALGIA [None]
  - TENDON RUPTURE [None]
  - TRAUMATIC LUNG INJURY [None]
  - SKELETAL INJURY [None]
  - FALL [None]
